FAERS Safety Report 22695931 (Version 5)
Quarter: 2023Q4

REPORT INFORMATION
  Report Type: Other
  Country: JP (occurrence: JP)
  Receive Date: 20230712
  Receipt Date: 20231202
  Transmission Date: 20240109
  Serious: Yes (Other)
  Sender: FDA-Public Use
  Company Number: JP-CHUGAI-2023022463AA

PATIENT
  Age: 70 Year
  Sex: Female
  Weight: 41.6 kg

DRUGS (12)
  1. POLIVY [Suspect]
     Active Substance: POLATUZUMAB VEDOTIN-PIIQ
     Indication: Diffuse large B-cell lymphoma
     Route: 065
     Dates: start: 20230413, end: 20230413
  2. POLIVY [Suspect]
     Active Substance: POLATUZUMAB VEDOTIN-PIIQ
     Route: 065
     Dates: start: 20230506, end: 20230506
  3. POLIVY [Suspect]
     Active Substance: POLATUZUMAB VEDOTIN-PIIQ
     Dosage: ON 19/07/2023, MOST RECENT DOSE RECEIVED
     Route: 065
     Dates: start: 20230527
  4. RITUXIMAB [Concomitant]
     Active Substance: RITUXIMAB
     Indication: Diffuse large B-cell lymphoma
     Dosage: 500 MILLIGRAM, SINGLE
     Route: 041
     Dates: start: 20230420, end: 20230420
  5. RITUXIMAB [Concomitant]
     Active Substance: RITUXIMAB
     Dosage: 490 MILLIGRAM
     Route: 041
     Dates: start: 20230509
  6. CYCLOPHOSPHAMIDE [Concomitant]
     Active Substance: CYCLOPHOSPHAMIDE
     Indication: Diffuse large B-cell lymphoma
     Dosage: 970 MILLIGRAM, SINGLE
     Route: 041
     Dates: start: 20230413, end: 20230413
  7. CYCLOPHOSPHAMIDE [Concomitant]
     Active Substance: CYCLOPHOSPHAMIDE
     Dosage: 980 MILLIGRAM
     Route: 041
     Dates: start: 20230506, end: 20230506
  8. CYCLOPHOSPHAMIDE [Concomitant]
     Active Substance: CYCLOPHOSPHAMIDE
     Dosage: 780 MILLIGRAM, SINGLE
     Route: 041
     Dates: start: 20230527, end: 20230527
  9. CYCLOPHOSPHAMIDE [Concomitant]
     Active Substance: CYCLOPHOSPHAMIDE
     Dosage: 520 MILLIGRAM
     Route: 041
     Dates: start: 20230620, end: 20230620
  10. DOXORUBICIN HYDROCHLORIDE [Concomitant]
     Active Substance: DOXORUBICIN HYDROCHLORIDE
     Indication: Diffuse large B-cell lymphoma
     Dosage: 65 MILLIGRAM
     Route: 041
     Dates: start: 20230413
  11. PREDNISOLONE [Concomitant]
     Active Substance: PREDNISOLONE
     Indication: Diffuse large B-cell lymphoma
     Dosage: 100 MILLIGRAM, QD
     Route: 048
     Dates: start: 20230413, end: 20230417
  12. PREDNISOLONE [Concomitant]
     Active Substance: PREDNISOLONE
     Dosage: 100 MILLIGRAM, QD
     Route: 048
     Dates: start: 20230506, end: 20230510

REACTIONS (10)
  - Neutropenia [Recovered/Resolved]
  - Leukopenia [Recovered/Resolved]
  - Hypokalaemia [Recovering/Resolving]
  - Hypokalaemia [Recovered/Resolved]
  - White blood cell count decreased [Not Recovered/Not Resolved]
  - Neutrophil count decreased [Recovered/Resolved]
  - Weight increased [Recovered/Resolved]
  - Lymphocyte count decreased [Recovering/Resolving]
  - Blood urea increased [Unknown]
  - Fluid retention [Unknown]

NARRATIVE: CASE EVENT DATE: 20230414
